FAERS Safety Report 6331076-2 (Version None)
Quarter: 2009Q3

REPORT INFORMATION
  Report Type: 
  Country: None (occurrence: None)
  Receive Date: 20090827
  Receipt Date: 20090817
  Transmission Date: 20100115
  Serious: Yes (Hospitalization)
  Sender: FDA-Public Use
  Company Number: DE-GENENTECH-289173

PATIENT
  Sex: Female

DRUGS (3)
  1. RITUXIMAB [Suspect]
     Route: 065
  2. PARACETAMOL [Suspect]
     Indication: NASOPHARYNGITIS
     Dosage: UNK
     Route: 065
     Dates: start: 20081201, end: 20081201
  3. NOVALGIN [Concomitant]
     Indication: DRUG USE FOR UNKNOWN INDICATION

REACTIONS (3)
  - CHOLESTASIS [None]
  - GASTRODUODENAL ULCER [None]
  - HEPATIC ENZYME INCREASED [None]
